FAERS Safety Report 9929069 (Version 2)
Quarter: 2014Q1

REPORT INFORMATION
  Report Type: Spontaneous
  Country: BR (occurrence: BR)
  Receive Date: 20140227
  Receipt Date: 20140227
  Transmission Date: 20141002
  Serious: Yes (Other)
  Sender: FDA-Public Use
  Company Number: BR-009507513-1307BRA016953

PATIENT
  Age: 31 Year
  Sex: Female
  Weight: 58 kg

DRUGS (1)
  1. NUVARING [Suspect]
     Indication: CONTRACEPTION
     Dosage: UNK
     Route: 067
     Dates: start: 2008, end: 201307

REACTIONS (5)
  - Caesarean section [Recovered/Resolved]
  - Haemorrhage in pregnancy [Recovered/Resolved]
  - Unintended pregnancy [Recovered/Resolved]
  - Gestational diabetes [Recovered/Resolved]
  - Complication of delivery [Unknown]
